FAERS Safety Report 8967248 (Version 1)
Quarter: 2012Q4

REPORT INFORMATION
  Report Type: 
  Country: US (occurrence: US)
  Receive Date: 20121214
  Receipt Date: 20121214
  Transmission Date: 20130627
  Serious: No
  Sender: FDA-Public Use
  Company Number: US-GLAXOSMITHKLINE-A0969748A

PATIENT
  Age: 47 Year
  Sex: Male

DRUGS (8)
  1. FLONASE [Suspect]
     Indication: CHRONIC OBSTRUCTIVE PULMONARY DISEASE
     Dosage: 1SPR Variable dose
     Route: 045
     Dates: start: 1999, end: 201109
  2. SUDAFED [Concomitant]
  3. ALLERCLEAR [Concomitant]
  4. SYMBICORT [Concomitant]
  5. VENTOLIN [Concomitant]
  6. VICODIN [Concomitant]
  7. LAMICTAL [Concomitant]
  8. LITHIUM [Concomitant]

REACTIONS (1)
  - Epistaxis [Recovered/Resolved]
